FAERS Safety Report 6913693-1 (Version None)
Quarter: 2010Q3

REPORT INFORMATION
  Report Type: 
  Country: None (occurrence: None)
  Receive Date: 20100806
  Receipt Date: 20100806
  Transmission Date: 20110219
  Serious: Yes (Other)
  Sender: FDA-Public Use
  Company Number: None

PATIENT
  Sex: Female
  Weight: 58.9676 kg

DRUGS (1)
  1. TRAZODONE HCL [Suspect]
     Indication: SOMNOLENCE
     Dosage: 2 1/4 TABLETS
     Dates: start: 20100721, end: 20100722

REACTIONS (1)
  - DYSPNOEA [None]
